FAERS Safety Report 15203646 (Version 1)
Quarter: 2018Q3

REPORT INFORMATION
  Report Type: Report from Study
  Country: US (occurrence: US)
  Receive Date: 20180726
  Receipt Date: 20180726
  Transmission Date: 20181010
  Serious: Yes (Hospitalization, Other)
  Sender: FDA-Public Use
  Company Number: US-SAKK-2018SA164738AA

PATIENT
  Sex: Male

DRUGS (2)
  1. APIDRA [Suspect]
     Active Substance: INSULIN GLULISINE
  2. INSULIN GLARGINE [Suspect]
     Active Substance: INSULIN GLARGINE
     Dosage: UNK UNK, UNK
     Route: 065

REACTIONS (1)
  - Cellulitis [Unknown]
